FAERS Safety Report 9914958 (Version 1)
Quarter: 2014Q1

REPORT INFORMATION
  Report Type: Spontaneous
  Country: RO (occurrence: RO)
  Receive Date: 20140220
  Receipt Date: 20140220
  Transmission Date: 20141002
  Serious: Yes (Life-Threatening)
  Sender: FDA-Public Use
  Company Number: PHHY2014RO017576

PATIENT
  Age: 57 Year
  Sex: Male

DRUGS (3)
  1. OXALIPLATIN EBEWE [Suspect]
     Indication: CHEMOTHERAPY
     Dosage: 150 MG, UNK
     Route: 042
     Dates: start: 20140106
  2. CALCIUM FOLINATE [Concomitant]
     Indication: CHEMOTHERAPY
     Dosage: 400 MG, UNK
     Route: 042
     Dates: start: 20140106, end: 20140106
  3. 5 FLUORO URACIL [Concomitant]
     Indication: CHEMOTHERAPY
     Dosage: 1500 MG, UNK
     Route: 042
     Dates: start: 20140106, end: 20140106

REACTIONS (3)
  - Respiratory failure [Recovered/Resolved]
  - Chills [Recovered/Resolved]
  - Muscle spasms [Recovered/Resolved]
